FAERS Safety Report 18147962 (Version 1)
Quarter: 2020Q3

REPORT INFORMATION
  Report Type: Spontaneous
  Country: SG (occurrence: SG)
  Receive Date: 20200813
  Receipt Date: 20200813
  Transmission Date: 20201103
  Serious: Yes (Other)
  Sender: FDA-Public Use
  Company Number: SG-PFIZER INC-2020309394

PATIENT
  Age: 58 Year
  Sex: Female

DRUGS (7)
  1. TRASTUZUMAB. [Concomitant]
     Active Substance: TRASTUZUMAB
     Indication: METASTASIS
  2. TRASTUZUMAB. [Concomitant]
     Active Substance: TRASTUZUMAB
     Indication: CHEMOTHERAPY
     Dosage: UNK, CYCLIC
  3. PERTUZUMAB. [Concomitant]
     Active Substance: PERTUZUMAB
     Indication: CHEMOTHERAPY
     Dosage: UNK, CYCLIC
  4. PACLITAXEL. [Suspect]
     Active Substance: PACLITAXEL
     Indication: INFLAMMATORY CARCINOMA OF THE BREAST
     Dosage: 175 MG/M2, EVERY 3 WEEKS (OVER 3 HOURS)
     Route: 042
  5. PERTUZUMAB. [Concomitant]
     Active Substance: PERTUZUMAB
     Indication: METASTASIS
  6. PERTUZUMAB. [Concomitant]
     Active Substance: PERTUZUMAB
     Indication: INFLAMMATORY CARCINOMA OF THE BREAST
  7. TRASTUZUMAB. [Concomitant]
     Active Substance: TRASTUZUMAB
     Indication: INFLAMMATORY CARCINOMA OF THE BREAST

REACTIONS (1)
  - Macular oedema [Recovered/Resolved]
